FAERS Safety Report 22055818 (Version 2)
Quarter: 2023Q2

REPORT INFORMATION
  Report Type: Spontaneous
  Country: US (occurrence: US)
  Receive Date: 20230302
  Receipt Date: 20230406
  Transmission Date: 20230722
  Serious: Yes (Other)
  Sender: FDA-Public Use
  Company Number: US-JNJFOC-20230258688

PATIENT
  Sex: Male
  Weight: 170 kg

DRUGS (1)
  1. CARVYKTI [Suspect]
     Active Substance: CILTACABTAGENE AUTOLEUCEL
     Indication: Plasma cell myeloma
     Route: 065
     Dates: start: 20230123

REACTIONS (5)
  - Cytokine release syndrome [Unknown]
  - Treatment failure [Unknown]
  - Biopsy bone marrow [Unknown]
  - Diarrhoea [Unknown]
  - Drug ineffective [Unknown]
